FAERS Safety Report 8300342-3 (Version None)
Quarter: 2012Q2

REPORT INFORMATION
  Report Type: 
  Country: None (occurrence: None)
  Receive Date: 20120417
  Receipt Date: 20120413
  Transmission Date: 20120825
  Serious: Yes (Other)
  Sender: FDA-Public Use
  Company Number: ADR-2011-11173

PATIENT
  Sex: Male

DRUGS (1)
  1. LIORESAL [Suspect]
     Indication: MUSCLE SPASTICITY
     Dosage: 922.4 MCG, DAILY, INTRA
     Route: 037

REACTIONS (7)
  - MUSCLE SPASTICITY [None]
  - MEDICAL DEVICE COMPLICATION [None]
  - DEVICE DISLOCATION [None]
  - MUSCULOSKELETAL STIFFNESS [None]
  - ARACHNOIDITIS [None]
  - LETHARGY [None]
  - INJURY ASSOCIATED WITH DEVICE [None]
